FAERS Safety Report 15766781 (Version 6)
Quarter: 2020Q1

REPORT INFORMATION
  Report Type: Report from Study
  Country: EC (occurrence: EC)
  Receive Date: 20181227
  Receipt Date: 20200328
  Transmission Date: 20200409
  Serious: Yes (Death, Hospitalization)
  Sender: FDA-Public Use
  Company Number: PHHY2018EC194794

PATIENT
  Age: 33 Year
  Sex: Female

DRUGS (6)
  1. TASIGNA [Suspect]
     Active Substance: NILOTINIB
     Dosage: 400 MG, BID
     Route: 048
     Dates: start: 20190226, end: 20190412
  2. TASIGNA [Suspect]
     Active Substance: NILOTINIB
     Indication: CHRONIC MYELOID LEUKAEMIA
     Dosage: 400 MG, BID
     Route: 048
     Dates: start: 20160510, end: 20180311
  3. TASIGNA [Suspect]
     Active Substance: NILOTINIB
     Dosage: 400 MG, BID
     Route: 048
     Dates: start: 20190717, end: 20190728
  4. TASIGNA [Suspect]
     Active Substance: NILOTINIB
     Dosage: 600 MG, QD
     Route: 048
     Dates: start: 20181028, end: 20190217
  5. TASIGNA [Suspect]
     Active Substance: NILOTINIB
     Dosage: 400 MG, BID
     Route: 048
     Dates: start: 20191021
  6. HYDROXYUREA. [Concomitant]
     Active Substance: HYDROXYUREA
     Indication: WHITE BLOOD CELL COUNT INCREASED
     Dosage: 500 MG, QID (2 IN THE MORNING AND 2 IN THE AFTERNOON)
     Route: 065
     Dates: start: 201604

REACTIONS (4)
  - Death [Fatal]
  - Splenitis [Not Recovered/Not Resolved]
  - Inappropriate schedule of product administration [Unknown]
  - Splenitis [Recovered/Resolved]

NARRATIVE: CASE EVENT DATE: 20181028
